FAERS Safety Report 8150301-9 (Version None)
Quarter: 2012Q1

REPORT INFORMATION
  Report Type: 
  Country: None (occurrence: None)
  Receive Date: 20120220
  Receipt Date: 20120206
  Transmission Date: 20120608
  Serious: Yes (Hospitalization)
  Sender: FDA-Public Use
  Company Number: US-ELI_LILLY_AND_COMPANY-US201202002014

PATIENT
  Age: 67 Year
  Sex: Female

DRUGS (18)
  1. HYDROXYCHLOROQUINE SULFATE [Concomitant]
     Dosage: 200 MG, BID
  2. VALTREX [Concomitant]
  3. SYNTHROID [Concomitant]
     Dosage: 0.15 MG, UNK
  4. PANTOPRAZOLE [Concomitant]
     Dosage: 40 MG, QD
  5. FORTEO [Suspect]
     Indication: OSTEOPOROSIS
     Dosage: 20 UG, QD
     Route: 065
     Dates: start: 20101115
  6. FUROSEMIDE [Concomitant]
     Dosage: 40 MG, QD
  7. SIMVASTATIN [Concomitant]
     Dosage: 20 MG, QD
  8. ADVAIR DISKUS 100/50 [Concomitant]
     Dosage: UNK, BID
  9. VALACICLOVIR [Concomitant]
     Dosage: 1 G, QD
  10. CARAFATE [Concomitant]
     Dosage: 1 G, BID
  11. CREON [Concomitant]
     Dosage: UNK
  12. EXTRA STRENGTH TYLENOL [Concomitant]
     Dosage: UNK
  13. CHLORACON [Concomitant]
     Dosage: 10 DF, BID
  14. SINGULAIR [Concomitant]
     Dosage: 10 MG, QD
  15. FLUTICASONE PROPIONATE [Concomitant]
     Dosage: 50 MG, UNK
  16. CALCIUM 500+D [Concomitant]
     Dosage: UNK
  17. TRAMADOL HCL [Concomitant]
     Dosage: 50 MG, UNK
  18. METOPROLOL TARTRATE [Concomitant]
     Indication: BLOOD PRESSURE
     Dosage: 25 MG, QD

REACTIONS (7)
  - DIARRHOEA [None]
  - ASTHENIA [None]
  - NAUSEA [None]
  - MALAISE [None]
  - ABDOMINAL PAIN UPPER [None]
  - GASTRITIS [None]
  - VOMITING [None]
